FAERS Safety Report 20466464 (Version 3)
Quarter: 2022Q1

REPORT INFORMATION
  Report Type: Spontaneous
  Country: JP (occurrence: JP)
  Receive Date: 20220213
  Receipt Date: 20220316
  Transmission Date: 20220423
  Serious: Yes (Other)
  Sender: FDA-Public Use
  Company Number: JP-CHUGAI-2022003446AA

PATIENT
  Age: 79 Year
  Sex: Female
  Weight: 48.5 kg

DRUGS (6)
  1. ACTEMRA [Suspect]
     Active Substance: TOCILIZUMAB
     Indication: Rheumatoid arthritis
     Dosage: UNK
     Route: 058
     Dates: start: 20220119, end: 20220202
  2. PREDNISOLONE [Concomitant]
     Active Substance: PREDNISOLONE
     Dosage: UNK
     Route: 065
  3. GASLON [Concomitant]
     Active Substance: IRSOGLADINE MALEATE
     Dosage: 4 MILLIGRAM, QD
     Route: 048
     Dates: start: 20220108
  4. TRAMADOL [Concomitant]
     Active Substance: TRAMADOL
     Dosage: 25 MILLIGRAM, QID
     Route: 048
     Dates: start: 20220115, end: 20220301
  5. LUNESTA [Concomitant]
     Active Substance: ESZOPICLONE
     Dosage: 1 MILLIGRAM, QD
     Route: 048
     Dates: start: 20220107
  6. AMLODIPINE BESYLATE [Concomitant]
     Active Substance: AMLODIPINE BESYLATE
     Dosage: 5 MILLIGRAM, QD
     Route: 048

REACTIONS (3)
  - Shock [Recovered/Resolved]
  - Blood pressure decreased [Recovered/Resolved]
  - Fall [Unknown]

NARRATIVE: CASE EVENT DATE: 20220202
